FAERS Safety Report 8972941 (Version 1)
Quarter: 2012Q4

REPORT INFORMATION
  Report Type: 
  Country: JP (occurrence: JP)
  Receive Date: 20121218
  Receipt Date: 20121218
  Transmission Date: 20130627
  Serious: Yes (Other)
  Sender: FDA-Public Use
  Company Number: JP-009507513-1212JPN005528

PATIENT
  Age: 51 Year
  Sex: Male

DRUGS (1)
  1. JANUVIA TABLETS 50MG [Suspect]
     Dosage: Divided dose frequency unknown
     Route: 048

REACTIONS (1)
  - Pancreatitis relapsing [Unknown]
